FAERS Safety Report 4595388-5 (Version None)
Quarter: 2005Q1

REPORT INFORMATION
  Report Type: 
  Country: None (occurrence: None)
  Receive Date: 20050225
  Receipt Date: 20050225
  Transmission Date: 20050727
  Serious: Yes (Life-Threatening, Hospitalization, Disabling)
  Sender: FDA-Public Use
  Company Number: None

PATIENT
  Age: 76 Year
  Sex: 0
  Weight: 83.9154 kg

DRUGS (2)
  1. ERBITUX [Suspect]
     Indication: COLON CANCER
  2. ERBITUX [Suspect]
     Indication: METASTASES TO LIVER

REACTIONS (2)
  - INTERSTITIAL LUNG DISEASE [None]
  - MYOCARDIAL INFARCTION [None]
